FAERS Safety Report 8267452-0 (Version None)
Quarter: 2012Q2

REPORT INFORMATION
  Report Type: 
  Country: None (occurrence: None)
  Receive Date: 20120409
  Receipt Date: 20120405
  Transmission Date: 20120825
  Serious: Yes (Death, Hospitalization)
  Sender: FDA-Public Use
  Company Number: PHHY2012AU019520

PATIENT
  Sex: Female

DRUGS (11)
  1. CLONAZEPAM [Concomitant]
  2. F.G.F. [Concomitant]
  3. CLOZARIL [Suspect]
     Dosage: 500 MG, UNK
     Route: 048
     Dates: start: 19990203
  4. ESOMEPRAZOLE [Concomitant]
  5. ALBUTEROL [Concomitant]
  6. SENNA [Concomitant]
  7. BENZTROPINE MESYLATE [Concomitant]
  8. BISACODYL [Concomitant]
  9. DIAZEPAM [Concomitant]
  10. ATORVASTATIN [Concomitant]
  11. COLOXYL [Concomitant]

REACTIONS (24)
  - CLOSTRIDIAL INFECTION [None]
  - BLOOD UREA INCREASED [None]
  - ATELECTASIS [None]
  - ILEUS [None]
  - PSEUDOMEMBRANOUS COLITIS [None]
  - DIARRHOEA [None]
  - DEHYDRATION [None]
  - PROTEIN TOTAL DECREASED [None]
  - PANCREATIC DISORDER [None]
  - ABNORMAL FAECES [None]
  - WHITE BLOOD CELL COUNT INCREASED [None]
  - INTESTINAL DILATATION [None]
  - ACUTE PULMONARY OEDEMA [None]
  - VOMITING [None]
  - PELVIC FLUID COLLECTION [None]
  - HAEMANGIOMA [None]
  - BRAIN INJURY [None]
  - NEUTROPHIL COUNT INCREASED [None]
  - GLOBULINS DECREASED [None]
  - ABDOMINAL DISTENSION [None]
  - PYREXIA [None]
  - HYPOALBUMINAEMIA [None]
  - HIATUS HERNIA [None]
  - PLEURAL EFFUSION [None]
